FAERS Safety Report 18043613 (Version 1)
Quarter: 2020Q3

REPORT INFORMATION
  Report Type: Other
  Country: CN (occurrence: CN)
  Receive Date: 20200720
  Receipt Date: 20200720
  Transmission Date: 20201103
  Serious: Yes (Other)
  Sender: FDA-Public Use
  Company Number: CN-ROCHE-2643597

PATIENT

DRUGS (1)
  1. ALTEPLASE. [Suspect]
     Active Substance: ALTEPLASE
     Indication: ISCHAEMIC STROKE
     Dosage: 0.9 MG PER KILOGRAM OF BODY WEIGHT
     Route: 042

REACTIONS (4)
  - Haemorrhage intracranial [Unknown]
  - Cerebral infarction [Unknown]
  - Pneumonia aspiration [Unknown]
  - Infarction [Unknown]
